FAERS Safety Report 4512505-3 (Version None)
Quarter: 2004Q4

REPORT INFORMATION
  Report Type: 
  Country: None (occurrence: None)
  Receive Date: 20041124
  Receipt Date: 20021126
  Transmission Date: 20050328
  Serious: Yes (Hospitalization)
  Sender: FDA-Public Use
  Company Number: 167591

PATIENT
  Age: 47 Year
  Sex: Female
  Weight: 113.3993 kg

DRUGS (7)
  1. AVONEX [Suspect]
     Indication: MULTIPLE SCLEROSIS
     Dosage: 30 UG;QW;IM
     Route: 030
     Dates: start: 20020701
  2. VIOXX [Concomitant]
  3. ZOLOFT [Concomitant]
  4. ZOCOR [Concomitant]
  5. DILTIAZEM [Concomitant]
  6. PRILOSEC [Concomitant]
  7. ASPIRIN [Concomitant]

REACTIONS (10)
  - BLOOD CHOLESTEROL INCREASED [None]
  - CONDITION AGGRAVATED [None]
  - HYPERTENSION [None]
  - INJECTION SITE HAEMORRHAGE [None]
  - INSOMNIA [None]
  - LOCALISED OSTEOARTHRITIS [None]
  - MENSTRUATION IRREGULAR [None]
  - MOBILITY DECREASED [None]
  - PAIN IN EXTREMITY [None]
  - POST PROCEDURAL COMPLICATION [None]
